APPROVED DRUG PRODUCT: PROPAFENONE HYDROCHLORIDE
Active Ingredient: PROPAFENONE HYDROCHLORIDE
Strength: 425MG
Dosage Form/Route: CAPSULE, EXTENDED RELEASE;ORAL
Application: A212928 | Product #003
Applicant: TWI PHARMACEUTICALS INC
Approved: Jun 18, 2020 | RLD: No | RS: No | Type: DISCN